FAERS Safety Report 10491339 (Version 1)
Quarter: 2014Q4

REPORT INFORMATION
  Report Type: Spontaneous
  Country: US (occurrence: US)
  Receive Date: 20141002
  Receipt Date: 20141002
  Transmission Date: 20150528
  Serious: No
  Sender: FDA-Public Use
  Company Number: US-GLAXOSMITHKLINE-A1051356A

PATIENT
  Age: 55 Year
  Sex: Male

DRUGS (2)
  1. ADVAIR HFA [Suspect]
     Active Substance: FLUTICASONE PROPIONATE\SALMETEROL XINAFOATE
     Indication: RESPIRATORY DISORDER
     Route: 055
  2. INHALERS [Suspect]
     Active Substance: UNSPECIFIED INGREDIENT
     Indication: RESPIRATORY DISORDER
     Route: 055

REACTIONS (1)
  - Total lung capacity decreased [Not Recovered/Not Resolved]
